FAERS Safety Report 5011484-2 (Version None)
Quarter: 2006Q2

REPORT INFORMATION
  Report Type: 
  Country: None (occurrence: None)
  Receive Date: 20060525
  Receipt Date: 20060523
  Transmission Date: 20061013
  Serious: Yes (Hospitalization, Disabling, Other)
  Sender: FDA-Public Use
  Company Number: US-MERCK-0605USA04282

PATIENT
  Age: 31 Year
  Sex: Male
  Weight: 114 kg

DRUGS (2)
  1. VYTORIN [Suspect]
     Indication: HYPERCHOLESTEROLAEMIA
     Route: 048
     Dates: end: 20060501
  2. LOTENSIN [Concomitant]
     Route: 065

REACTIONS (4)
  - ERYTHEMA [None]
  - MUSCULOSKELETAL CHEST PAIN [None]
  - OEDEMA PERIPHERAL [None]
  - RHABDOMYOLYSIS [None]
